FAERS Safety Report 9391730 (Version 3)
Quarter: 2013Q3

REPORT INFORMATION
  Report Type: Spontaneous
  Country: AU (occurrence: AU)
  Receive Date: 20130709
  Receipt Date: 20130904
  Transmission Date: 20140515
  Serious: Yes (Other)
  Sender: FDA-Public Use
  Company Number: AU-GLAXOSMITHKLINE-B0903505A

PATIENT
  Age: 52 Year
  Sex: Male
  Weight: 75 kg

DRUGS (1)
  1. DUODART [Suspect]
     Indication: NOCTURIA
     Dosage: 1CAP AT NIGHT
     Route: 065
     Dates: start: 20130611, end: 20130619

REACTIONS (5)
  - Oesophageal pain [Recovered/Resolved]
  - Oesophageal irritation [Recovered/Resolved]
  - Pain [Recovered/Resolved]
  - Gastrooesophageal reflux disease [Recovered/Resolved]
  - Product quality issue [Unknown]
